FAERS Safety Report 8776654 (Version 1)
Quarter: 2012Q4

REPORT INFORMATION
  Report Type: 
  Country: IL (occurrence: IL)
  Receive Date: 20120910
  Receipt Date: 20120910
  Transmission Date: 20130627
  Serious: Yes (Other)
  Sender: FDA-Public Use
  Company Number: PHHY2010IL094809

PATIENT

DRUGS (7)
  1. CLOZAPINE [Suspect]
     Indication: SCHIZOPHRENIA, PARANOID TYPE
     Dosage: 1800 mg, daily
  2. CLOZAPINE [Suspect]
     Dosage: 1600 mg, daily
  3. CLOZAPINE [Suspect]
     Dosage: 1700 mg, daily
  4. CLONAZEPAM [Concomitant]
     Dosage: 2 mg, TID
  5. ARIPIPRAZOLE [Concomitant]
     Dosage: 20 mg, QD
  6. THIOPENTAL [Concomitant]
     Dosage: 3 mg/kg, UNK
  7. SUCCINYLCHOLINE CHLORIDE [Concomitant]
     Dosage: 1 mg/kg, UNK

REACTIONS (5)
  - Wolff-Parkinson-White syndrome [Unknown]
  - Schizophrenia [Unknown]
  - Salivary hypersecretion [Unknown]
  - Sedation [Unknown]
  - Antipsychotic drug level increased [Unknown]
